FAERS Safety Report 6763241-4 (Version None)
Quarter: 2010Q2

REPORT INFORMATION
  Report Type: 
  Country: None (occurrence: None)
  Receive Date: 20100610
  Receipt Date: 20100527
  Transmission Date: 20101027
  Serious: Yes (Hospitalization)
  Sender: FDA-Public Use
  Company Number: US-ASTRAZENECA-2010SE26547

PATIENT
  Sex: Male

DRUGS (6)
  1. SEROQUEL [Suspect]
     Route: 048
     Dates: start: 20041123
  2. PROZAC [Concomitant]
     Route: 048
     Dates: start: 20041123
  3. ZESTRIL [Concomitant]
     Route: 048
     Dates: start: 20041123
  4. HYDROCHLOROTHIAZIDE [Concomitant]
     Route: 048
     Dates: start: 20041123
  5. METFORMIN [Concomitant]
     Route: 048
     Dates: start: 20041123
  6. ASPIRIN [Concomitant]
     Route: 048
     Dates: start: 20041123

REACTIONS (1)
  - MAJOR DEPRESSION [None]
